FAERS Safety Report 18396029 (Version 1)
Quarter: 2020Q4

REPORT INFORMATION
  Report Type: Not Available
  Country: US (occurrence: US)
  Receive Date: 20201018
  Receipt Date: 20201018
  Transmission Date: 20210114
  Serious: No
  Sender: FDA-Public Use
  Company Number: US-NEUROCRINE BIOSCIENCES INC.-2020NBI03650

PATIENT
  Age: 57 Year
  Sex: Male

DRUGS (10)
  1. LITHIUM CARBONATE. [Concomitant]
     Active Substance: LITHIUM CARBONATE
  2. CRESTOR [Concomitant]
     Active Substance: ROSUVASTATIN CALCIUM
  3. SERTRALINE [Concomitant]
     Active Substance: SERTRALINE HYDROCHLORIDE
  4. GEODON [Concomitant]
     Active Substance: ZIPRASIDONE HYDROCHLORIDE\ZIPRASIDONE MESYLATE
  5. FENOFIBRATE. [Concomitant]
     Active Substance: FENOFIBRATE
  6. ACTOS [Concomitant]
     Active Substance: PIOGLITAZONE HYDROCHLORIDE
  7. INGREZZA [Suspect]
     Active Substance: VALBENAZINE
     Indication: CHOREA
     Route: 048
     Dates: start: 20200717, end: 20200724
  8. INGREZZA [Suspect]
     Active Substance: VALBENAZINE
     Route: 048
     Dates: start: 20200725
  9. AVAPRO [Concomitant]
     Active Substance: IRBESARTAN
  10. VITAMIN D3 [Concomitant]
     Active Substance: CHOLECALCIFEROL

REACTIONS (2)
  - Off label use [Unknown]
  - Drooling [Not Recovered/Not Resolved]

NARRATIVE: CASE EVENT DATE: 2020
